FAERS Safety Report 11133163 (Version 2)
Quarter: 2015Q2

REPORT INFORMATION
  Report Type: Spontaneous
  Country: US (occurrence: US)
  Receive Date: 20150522
  Receipt Date: 20150624
  Transmission Date: 20150821
  Serious: Yes (Hospitalization)
  Sender: FDA-Public Use
  Company Number: US-ASTRAZENECA-2015SE45580

PATIENT
  Age: 21442 Day
  Sex: Female
  Weight: 94.1 kg

DRUGS (2)
  1. BYDUREON [Suspect]
     Active Substance: EXENATIDE
     Indication: WEIGHT DECREASED
     Route: 058
     Dates: start: 20150422, end: 20150514
  2. BYDUREON [Suspect]
     Active Substance: EXENATIDE
     Indication: TYPE 2 DIABETES MELLITUS
     Route: 058
     Dates: start: 20150422, end: 20150514

REACTIONS (4)
  - Weight decreased [Recovering/Resolving]
  - Anaphylactic reaction [Recovered/Resolved]
  - Urticaria [Recovered/Resolved]
  - Swelling [Recovered/Resolved]

NARRATIVE: CASE EVENT DATE: 20150514
